FAERS Safety Report 7644056-1 (Version None)
Quarter: 2011Q3

REPORT INFORMATION
  Report Type: 
  Country: None (occurrence: None)
  Receive Date: 20110729
  Receipt Date: 20110719
  Transmission Date: 20111222
  Serious: Yes (Hospitalization)
  Sender: FDA-Public Use
  Company Number: DE-CELGENEUS-062-21880-10122830

PATIENT
  Age: 66 Year
  Sex: Male

DRUGS (8)
  1. REVLIMID [Suspect]
     Route: 048
     Dates: start: 20101231
  2. TREOSULFAN [Suspect]
     Indication: MULTIPLE MYELOMA
     Dosage: 250 MILLIGRAM
     Route: 048
     Dates: start: 20091130, end: 20101223
  3. COTRIM DS [Concomitant]
     Indication: PNEUMONIA
     Dosage: 5760 MILLIGRAM
     Route: 048
     Dates: start: 20101203, end: 20101224
  4. REVLIMID [Suspect]
     Indication: MULTIPLE MYELOMA
     Route: 048
     Dates: start: 20091130, end: 20101223
  5. VFEND [Concomitant]
     Indication: PNEUMONIA
     Dosage: 400 MILLIGRAM
     Route: 048
     Dates: start: 20101203, end: 20101224
  6. DEXAMETHASONE [Suspect]
     Indication: MULTIPLE MYELOMA
     Route: 048
     Dates: start: 20091130
  7. PIOGLITAZONE [Suspect]
     Indication: MULTIPLE MYELOMA
     Dosage: 60 MILLIGRAM
     Route: 048
     Dates: start: 20091130
  8. TREOSULFAN [Suspect]
     Dosage: 250 MILLIGRAM
     Route: 048
     Dates: start: 20101231, end: 20101223

REACTIONS (2)
  - CONSTIPATION [None]
  - HYPERSENSITIVITY [None]
